FAERS Safety Report 8163687-6 (Version None)
Quarter: 2012Q1

REPORT INFORMATION
  Report Type: 
  Country: None (occurrence: None)
  Receive Date: 20120224
  Receipt Date: 20120209
  Transmission Date: 20120608
  Serious: Yes (Other)
  Sender: FDA-Public Use
  Company Number: PHHY2012HR011501

PATIENT
  Age: 63 Year
  Sex: Male
  Weight: 85 kg

DRUGS (7)
  1. HYDROCHLOROTHIAZDE TAB [Concomitant]
     Dosage: 15 MG, QD
     Route: 048
     Dates: start: 20020701
  2. NEORAL [Suspect]
     Indication: HEART TRANSPLANT
     Dosage: 100 MG, QD
     Route: 048
     Dates: start: 20020701
  3. ATENOLOL [Concomitant]
     Dosage: 50 MG, QD
     Route: 048
     Dates: start: 20020701
  4. LERCANIDIPINE [Concomitant]
     Dosage: 10 MG, UNK
     Route: 048
  5. NEORAL [Suspect]
     Dosage: UNK
     Dates: start: 20101101
  6. PANTOPRAZOLE [Concomitant]
     Dosage: 20 MG, UNK
     Route: 048
  7. IMURAN [Concomitant]
     Indication: HEART TRANSPLANT
     Dosage: 25 MG, QD
     Route: 048
     Dates: start: 20020701

REACTIONS (9)
  - OSTEOPOROSIS [None]
  - NEPHROPATHY [None]
  - RENAL CYST [None]
  - OSTEOARTHRITIS [None]
  - CAUDA EQUINA SYNDROME [None]
  - RENAL FAILURE CHRONIC [None]
  - HYPERURICAEMIA [None]
  - CARDIAC FAILURE [None]
  - BENIGN PROSTATIC HYPERPLASIA [None]
